FAERS Safety Report 15703528 (Version 1)
Quarter: 2018Q4

REPORT INFORMATION
  Report Type: Spontaneous
  Country: US (occurrence: US)
  Receive Date: 20181210
  Receipt Date: 20181210
  Transmission Date: 20190205
  Serious: No
  Sender: FDA-Public Use
  Company Number: None

PATIENT
  Age: 55 Year
  Sex: Female
  Weight: 145.35 kg

DRUGS (18)
  1. LEVOTHYROXINE. [Concomitant]
     Active Substance: LEVOTHYROXINE
  2. PROBIOTICS [Concomitant]
     Active Substance: PROBIOTICS NOS
  3. CIPROFLOXACIN HAS 500 MG TABLETS [Suspect]
     Active Substance: CIPROFLOXACIN
     Indication: SINUSITIS
     Dosage: ?          QUANTITY:1 TABLET(S);?
     Route: 048
     Dates: start: 20181206, end: 20181209
  4. COQ 10 [Concomitant]
     Active Substance: UBIDECARENONE
  5. KRILL OIL [Concomitant]
     Active Substance: DIETARY SUPPLEMENT
  6. ASA [Concomitant]
     Active Substance: ASPIRIN
  7. ATENOLOL. [Concomitant]
     Active Substance: ATENOLOL
  8. HYOSCYAMINE. [Concomitant]
     Active Substance: HYOSCYAMINE
  9. IBUPROFEN. [Concomitant]
     Active Substance: IBUPROFEN
  10. LOMOTIL [Concomitant]
     Active Substance: ATROPINE SULFATE\DIPHENOXYLATE HYDROCHLORIDE
  11. VITAMIN A [Concomitant]
     Active Substance: VITAMIN A
  12. ACACIA FIBER [Concomitant]
  13. VITAMIN D3 [Concomitant]
     Active Substance: CHOLECALCIFEROL
  14. WELLBUTRIN [Concomitant]
     Active Substance: BUPROPION HYDROCHLORIDE
  15. GABAPENTIN. [Concomitant]
     Active Substance: GABAPENTIN
  16. MAXALT [Concomitant]
     Active Substance: RIZATRIPTAN BENZOATE
  17. DULOXITINE [Concomitant]
  18. LEXAPRO [Concomitant]
     Active Substance: ESCITALOPRAM OXALATE

REACTIONS (5)
  - Agitation [None]
  - Suicidal ideation [None]
  - Hypersomnia [None]
  - Hallucination [None]
  - Anxiety [None]

NARRATIVE: CASE EVENT DATE: 20181209
